FAERS Safety Report 8760352 (Version 3)
Quarter: 2013Q4

REPORT INFORMATION
  Report Type: Spontaneous
  Country: DE (occurrence: DE)
  Receive Date: 20120830
  Receipt Date: 20131031
  Transmission Date: 20140711
  Serious: Yes (Life-Threatening)
  Sender: FDA-Public Use
  Company Number: DE-009507513-1208DEU010421

PATIENT
  Sex: 0

DRUGS (2)
  1. EMEND [Suspect]
     Indication: PROPHYLAXIS OF NAUSEA AND VOMITING
     Dosage: ON DAYS ONE TO THREE
     Route: 048
  2. PACLITAXEL [Concomitant]
     Dosage: UNK, QW

REACTIONS (5)
  - Bone marrow failure [Unknown]
  - Bone marrow toxicity [Unknown]
  - Pain [Unknown]
  - Inflammation [Unknown]
  - Infection [Unknown]
